FAERS Safety Report 14192402 (Version 1)
Quarter: 2017Q4

REPORT INFORMATION
  Report Type: Report from Study
  Country: None (occurrence: US)
  Receive Date: 20171115
  Receipt Date: 20171115
  Transmission Date: 20180321
  Serious: Yes (Congenital Anomaly)
  Sender: FDA-Public Use
  Company Number: US-ABBVIE-17P-163-2160297-00

PATIENT

DRUGS (3)
  1. ATAZANAVIR SULFATE. [Suspect]
     Active Substance: ATAZANAVIR SULFATE
     Indication: MATERNAL EXPOSURE TIMING UNSPECIFIED
     Route: 064
  2. TENOFOVIR DISOPROXIL FUMARATE+EMTRICITABINE [Suspect]
     Active Substance: EMTRICITABINE\TENOFOVIR DISOPROXIL FUMARATE
     Indication: MATERNAL EXPOSURE TIMING UNSPECIFIED
     Route: 064
  3. RITONAVIR. [Suspect]
     Active Substance: RITONAVIR
     Indication: MATERNAL EXPOSURE TIMING UNSPECIFIED
     Route: 064

REACTIONS (2)
  - Foetal exposure during pregnancy [Unknown]
  - Cerebral ventricle dilatation [Unknown]
